FAERS Safety Report 7907523-9 (Version None)
Quarter: 2011Q4

REPORT INFORMATION
  Report Type: 
  Country: None (occurrence: None)
  Receive Date: 20111110
  Receipt Date: 20111028
  Transmission Date: 20120403
  Serious: Yes (Hospitalization, Other)
  Sender: FDA-Public Use
  Company Number: PHHY2011JP88134

PATIENT
  Sex: Female
  Weight: 54 kg

DRUGS (1)
  1. RASILEZ [Suspect]
     Indication: HYPERTENSION
     Dosage: 150 MG
     Route: 048
     Dates: start: 20101028

REACTIONS (4)
  - HEMIANOPIA HOMONYMOUS [None]
  - CEREBRAL HAEMORRHAGE [None]
  - HEADACHE [None]
  - PALPITATIONS [None]
